FAERS Safety Report 9967212 (Version 2)
Quarter: 2014Q1

REPORT INFORMATION
  Report Type: Report from Study
  Country: US (occurrence: US)
  Receive Date: 20140305
  Receipt Date: 20140305
  Transmission Date: 20141002
  Serious: No
  Sender: FDA-Public Use
  Company Number: US-ABBVIE-12P-163-1027871-00

PATIENT
  Age: 52 Year
  Sex: Male

DRUGS (1)
  1. HUMIRA [Suspect]
     Indication: CROHN^S DISEASE
     Dates: start: 20080818

REACTIONS (14)
  - Nephrolithiasis [Recovered/Resolved]
  - Pain [Recovered/Resolved]
  - Haematuria [Recovered/Resolved]
  - Haematuria [Recovered/Resolved]
  - Pyrexia [Recovered/Resolved]
  - Psoriasis [Unknown]
  - Arthralgia [Unknown]
  - Nodule [Unknown]
  - Nasopharyngitis [Unknown]
  - Influenza [Unknown]
  - Feeling hot [Unknown]
  - Pruritus generalised [Unknown]
  - Herpes zoster [Recovered/Resolved]
  - Arthritis [Unknown]
